FAERS Safety Report 10756443 (Version 3)
Quarter: 2015Q1

REPORT INFORMATION
  Report Type: Report from Study
  Country: RO (occurrence: RO)
  Receive Date: 20150202
  Receipt Date: 20150212
  Transmission Date: 20150721
  Serious: Yes (Hospitalization)
  Sender: FDA-Public Use
  Company Number: RO-ABBVIE-15P-135-1340509-00

PATIENT
  Age: 65 Year
  Sex: Male

DRUGS (13)
  1. MONONITRON [Concomitant]
     Indication: HYPERTENSION
     Dosage: EVERY MORNING
  2. RIVASTIGMINA [Concomitant]
     Indication: PRODUCT USED FOR UNKNOWN INDICATION
     Dosage: EVERY EVENING
  3. LEVODOPA/CARBIDOPA [Suspect]
     Active Substance: CARBIDOPA\LEVODOPA
     Indication: PARKINSON^S DISEASE
     Dosage: MD: 15 ML?CR: 7.2 ML?ED: 3.5 ML X 2
     Route: 050
     Dates: start: 20130617
  4. TIAPRIDAL [Concomitant]
     Active Substance: TIAPRIDE HYDROCHLORIDE
     Indication: DEMENTIA
     Dosage: EVERY EVENING
  5. OMEZ [Concomitant]
     Active Substance: OMEPRAZOLE
     Indication: PRODUCT USED FOR UNKNOWN INDICATION
  6. AMARYL [Concomitant]
     Active Substance: GLIMEPIRIDE
     Indication: DIABETES MELLITUS
     Dosage: EVERY MORNING AND EVENING
     Route: 048
  7. NEBIVOLOL [Concomitant]
     Active Substance: NEBIVOLOL
     Indication: HYPERTENSION
     Dosage: 1.25, EVERY MORNING
  8. SIOFOR [Concomitant]
     Active Substance: METFORMIN HYDROCHLORIDE
     Indication: DIABETES MELLITUS
     Route: 048
  9. MILGAMA [Concomitant]
     Indication: DIABETES MELLITUS
     Route: 048
  10. ZENTRA [Concomitant]
     Indication: HYPERTENSION
     Dosage: EVERY EVENING
  11. PROTECARDIN [Concomitant]
     Indication: HYPERTENSION
     Dosage: EVERY NOON-TIME
  12. STIMULOTON [Concomitant]
     Indication: DEMENTIA
     Dosage: EVERY MORNING
  13. MARBETA [Concomitant]
     Indication: DEMENTIA

REACTIONS (4)
  - Inguinal hernia [Recovered/Resolved]
  - Cough [Unknown]
  - Painful defaecation [Unknown]
  - Swelling [Unknown]

NARRATIVE: CASE EVENT DATE: 20150128
